FAERS Safety Report 16722745 (Version 1)
Quarter: 2019Q3

REPORT INFORMATION
  Report Type: Spontaneous
  Country: AU (occurrence: AU)
  Receive Date: 20190821
  Receipt Date: 20190821
  Transmission Date: 20191005
  Serious: Yes (Other)
  Sender: FDA-Public Use
  Company Number: AU-BEH-2019105732

PATIENT
  Age: 83 Year
  Sex: Male

DRUGS (1)
  1. PRIVIGEN [Suspect]
     Active Substance: HUMAN IMMUNOGLOBULIN G
     Indication: PRIMARY IMMUNODEFICIENCY SYNDROME
     Dosage: 40 GRAM, TOT
     Route: 065
     Dates: start: 20190714, end: 20190714

REACTIONS (4)
  - Hypoxia [Unknown]
  - Dyspnoea [Unknown]
  - Tryptase increased [Unknown]
  - Urticaria [Unknown]

NARRATIVE: CASE EVENT DATE: 20190714
